FAERS Safety Report 7529040-0 (Version None)
Quarter: 2011Q2

REPORT INFORMATION
  Report Type: 
  Country: None (occurrence: None)
  Receive Date: 20110607
  Receipt Date: 20110601
  Transmission Date: 20111010
  Serious: Yes (Other)
  Sender: FDA-Public Use
  Company Number: BR-PFIZER INC-2011111817

PATIENT
  Age: 57 Year
  Sex: Male
  Weight: 79 kg

DRUGS (4)
  1. CARDURA [Suspect]
     Dosage: ONE TABLET, EVERY OTHER DAY
     Dates: start: 20110526
  2. ASPIRIN [Suspect]
     Dosage: UNK
     Dates: start: 20110501
  3. CATAFLAM [Suspect]
     Dosage: ONE TABLET EVERY 8 HOURS
     Dates: start: 20110501, end: 20110501
  4. CARDURA [Suspect]
     Indication: PROSTATIC DISORDER
     Dosage: 4 MG (ONE TABLET), 1X/DAY
     Route: 048
     Dates: start: 20110512, end: 20110519

REACTIONS (7)
  - DIZZINESS POSTURAL [None]
  - ABNORMAL FAECES [None]
  - OROPHARYNGEAL PAIN [None]
  - ASTHENIA [None]
  - DIZZINESS [None]
  - DIARRHOEA HAEMORRHAGIC [None]
  - HEADACHE [None]
